FAERS Safety Report 15048649 (Version 1)
Quarter: 2018Q2

REPORT INFORMATION
  Report Type: Report from Study
  Country: CN (occurrence: CN)
  Receive Date: 20180622
  Receipt Date: 20180622
  Transmission Date: 20180711
  Serious: Yes (Death)
  Sender: FDA-Public Use
  Company Number: CN-ROCHE-2124289

PATIENT
  Sex: Female
  Weight: 45 kg

DRUGS (1)
  1. AVASTIN [Suspect]
     Active Substance: BEVACIZUMAB
     Indication: COLON CANCER
     Route: 041
     Dates: start: 20170801

REACTIONS (5)
  - Decreased appetite [Fatal]
  - Skin ulcer [Unknown]
  - Peripheral swelling [Unknown]
  - Gastrointestinal haemorrhage [Fatal]
  - Haematemesis [Fatal]
